FAERS Safety Report 19856638 (Version 1)
Quarter: 2021Q3

REPORT INFORMATION
  Report Type: Spontaneous
  Country: JP (occurrence: JP)
  Receive Date: 20210920
  Receipt Date: 20210920
  Transmission Date: 20211014
  Serious: Yes (Death)
  Sender: FDA-Public Use
  Company Number: JP-MALLINCKRODT PHARMACEUTICALS-T202104203

PATIENT

DRUGS (2)
  1. INOFLO [Suspect]
     Active Substance: NITRIC OXIDE
     Indication: POSTOPERATIVE CARE
  2. INOFLO [Suspect]
     Active Substance: NITRIC OXIDE
     Indication: PULMONARY HYPERTENSION
     Dosage: UNK (INHALATION)
     Route: 055

REACTIONS (2)
  - Product use in unapproved indication [Unknown]
  - Aortic dissection [Fatal]
